FAERS Safety Report 8171225-7 (Version None)
Quarter: 2012Q1

REPORT INFORMATION
  Report Type: 
  Country: None (occurrence: None)
  Receive Date: 20120113
  Receipt Date: 20111123
  Transmission Date: 20120608
  Serious: No
  Sender: FDA-Public Use
  Company Number: 2011S1000109

PATIENT
  Age: 74 Year
  Sex: Male

DRUGS (21)
  1. KRYSTEXXA [Suspect]
     Indication: GOUT
     Dosage: 8 MG;X1;IV 8 MG;X1;IV 8 MG;X1;IV 8 MG;X1;IV
     Route: 042
     Dates: start: 20111013, end: 20111013
  2. KRYSTEXXA [Suspect]
     Indication: GOUT
     Dosage: 8 MG;X1;IV 8 MG;X1;IV 8 MG;X1;IV 8 MG;X1;IV
     Route: 042
     Dates: start: 20111110, end: 20111110
  3. KRYSTEXXA [Suspect]
     Indication: GOUT
     Dosage: 8 MG;X1;IV 8 MG;X1;IV 8 MG;X1;IV 8 MG;X1;IV
     Route: 042
     Dates: start: 20111123, end: 20111123
  4. KRYSTEXXA [Suspect]
     Indication: GOUT
     Dosage: 8 MG;X1;IV 8 MG;X1;IV 8 MG;X1;IV 8 MG;X1;IV
     Route: 042
     Dates: start: 20111027, end: 20111027
  5. PREDNISONE TAB [Concomitant]
  6. ATENOLOL [Concomitant]
  7. NIASPAN [Concomitant]
  8. ALAVERT [Concomitant]
  9. COLCRYS [Concomitant]
  10. SOLU-MEDROL [Concomitant]
  11. COUMADIN [Concomitant]
  12. CITRUS BIOFLAVONID [Concomitant]
  13. KRYSTEXXA [Suspect]
  14. AMLODIPINE [Concomitant]
  15. VITAMIN D [Concomitant]
  16. KRYSTEXXA [Suspect]
  17. ALLEGRA [Concomitant]
  18. BENICAR [Concomitant]
  19. ULORIC [Concomitant]
  20. KRYSTEXXA [Suspect]
  21. CALCIUM + VITAMIN D [Concomitant]

REACTIONS (3)
  - ALOPECIA [None]
  - GOUT [None]
  - FATIGUE [None]
